FAERS Safety Report 7639877-5 (Version None)
Quarter: 2011Q3

REPORT INFORMATION
  Report Type: 
  Country: None (occurrence: None)
  Receive Date: 20110727
  Receipt Date: 20110721
  Transmission Date: 20111222
  Serious: Yes (Death, Other)
  Sender: FDA-Public Use
  Company Number: JP-CEPHALON-2011003859

PATIENT
  Sex: Male
  Weight: 73 kg

DRUGS (11)
  1. BENDAMUSTINE HCL [Suspect]
     Route: 042
     Dates: start: 20110328, end: 20110329
  2. ALLOPURINOL [Concomitant]
     Dates: start: 20110214, end: 20110605
  3. BENDAMUSTINE HCL [Suspect]
     Route: 042
     Dates: start: 20110603, end: 20110604
  4. AMOXICILLIN AND CLAVULANATE POTASSIUM [Concomitant]
     Dates: start: 20110214
  5. BENDAMUSTINE HCL [Suspect]
     Indication: EXTRANODAL MARGINAL ZONE B-CELL LYMPHOMA (MALT TYPE)
     Route: 042
     Dates: start: 20110214, end: 20110215
  6. SULFAMETHOXAZOLE AND TRIMETHOPRIM [Concomitant]
     Dates: end: 20110622
  7. CIPROFLOXACIN HYDROCHLORIDE [Concomitant]
     Dates: start: 20110214
  8. PLATELETS, CONCENTRATED [Concomitant]
     Dates: start: 20110620, end: 20110702
  9. BENDAMUSTINE HCL [Suspect]
     Route: 042
     Dates: start: 20110214, end: 20110215
  10. BETAMETHASONE [Concomitant]
     Dates: end: 20110622
  11. RED BLOOD CELLS, CONCENTRATED [Concomitant]
     Dates: start: 20110607, end: 20110624

REACTIONS (8)
  - ANGIOPATHY [None]
  - PNEUMONIA CYTOMEGALOVIRAL [None]
  - BLOOD CALCIUM INCREASED [None]
  - PLATELET COUNT DECREASED [None]
  - DYSPNOEA [None]
  - BLOOD URIC ACID INCREASED [None]
  - WHITE BLOOD CELL COUNT DECREASED [None]
  - PYREXIA [None]
